FAERS Safety Report 4734264-1 (Version None)
Quarter: 2005Q3

REPORT INFORMATION
  Report Type: 
  Country: None (occurrence: None)
  Receive Date: 20050729
  Receipt Date: 20050720
  Transmission Date: 20060218
  Serious: Yes (Other)
  Sender: FDA-Public Use
  Company Number: 2005106109

PATIENT
  Sex: Male

DRUGS (3)
  1. SOLU-CORTEF [Suspect]
     Indication: ACUTE MYELOID LEUKAEMIA
     Dosage: (100 MG), INTRATHECAL
     Route: 037
     Dates: start: 20050720
  2. CYTARABINE [Concomitant]
  3. METHOTREXATE [Concomitant]

REACTIONS (6)
  - DIARRHOEA [None]
  - FLUSHING [None]
  - HYPERHIDROSIS [None]
  - NAUSEA [None]
  - PHARMACEUTICAL PRODUCT COMPLAINT [None]
  - VOMITING PROJECTILE [None]
